FAERS Safety Report 20185415 (Version 2)
Quarter: 2022Q1

REPORT INFORMATION
  Report Type: Spontaneous
  Country: US (occurrence: US)
  Receive Date: 20211215
  Receipt Date: 20220111
  Transmission Date: 20220424
  Serious: No
  Sender: FDA-Public Use
  Company Number: US-AMGEN-USASP2021197341

PATIENT
  Age: 56 Year
  Sex: Female

DRUGS (4)
  1. OTEZLA [Suspect]
     Active Substance: APREMILAST
     Indication: Product used for unknown indication
     Dosage: 30 MILLIGRAM, BID
     Route: 048
     Dates: start: 20211022
  2. CALCIPOTRIENE [Concomitant]
     Active Substance: CALCIPOTRIENE
     Dosage: UNK, 0.005%
  3. CLOBETASOL [Concomitant]
     Active Substance: CLOBETASOL
  4. MOMETASONE [Concomitant]
     Active Substance: MOMETASONE
     Dosage: UNK, 0.01%

REACTIONS (3)
  - Headache [Unknown]
  - Anxiety [Unknown]
  - Palpitations [Unknown]

NARRATIVE: CASE EVENT DATE: 20211001
